FAERS Safety Report 7259961-8 (Version None)
Quarter: 2011Q1

REPORT INFORMATION
  Report Type: 
  Country: None (occurrence: None)
  Receive Date: 20110130
  Receipt Date: 20101006
  Transmission Date: 20110831
  Serious: No
  Sender: FDA-Public Use
  Company Number: US-ABBOTT-10P-163-0676271-00

PATIENT
  Age: 45 Year
  Sex: Female

DRUGS (10)
  1. HUMIRA [Suspect]
     Indication: CROHN'S DISEASE
     Dosage: LOADING DOSE
     Dates: start: 20100901
  2. VENTOLIN [Concomitant]
     Indication: ASTHMA
  3. LYRICA [Concomitant]
     Indication: FIBROMYALGIA
  4. ZOLOFT [Concomitant]
     Indication: DEPRESSION
  5. ZOLOFT [Concomitant]
     Indication: ANXIETY
  6. VITAMIN D [Concomitant]
     Indication: PRODUCT USED FOR UNKNOWN INDICATION
  7. FLEXERIL [Concomitant]
     Indication: PAIN
  8. HYDROHYZ [Concomitant]
     Indication: PRURITUS
  9. XANAX [Concomitant]
     Indication: ANXIETY
  10. ALBUTEROL [Concomitant]
     Indication: ASTHMA
     Dosage: NEBULIZER

REACTIONS (2)
  - EAR PAIN [None]
  - EAR INFECTION [None]
